FAERS Safety Report 13361317 (Version 2)
Quarter: 2017Q1

REPORT INFORMATION
  Report Type: Spontaneous
  Country: US (occurrence: US)
  Receive Date: 20170323
  Receipt Date: 20170330
  Transmission Date: 20170429
  Serious: Yes (Other)
  Sender: FDA-Public Use
  Company Number: US-ASTRAZENECA-2017SE29515

PATIENT
  Age: 58 Year
  Sex: Female
  Weight: 58.1 kg

DRUGS (21)
  1. VISTARIL [Concomitant]
     Active Substance: HYDROXYZINE PAMOATE
     Indication: ANXIETY
     Route: 048
  2. CLARITIN [Concomitant]
     Active Substance: LORATADINE
     Route: 048
  3. AROMASIN [Suspect]
     Active Substance: EXEMESTANE
     Route: 065
  4. VISTARIL [Concomitant]
     Active Substance: HYDROXYZINE PAMOATE
     Indication: TENSION
     Route: 048
  5. PEPCID [Concomitant]
     Active Substance: FAMOTIDINE
  6. FASLODEX [Suspect]
     Active Substance: FULVESTRANT
     Indication: BREAST CANCER FEMALE
     Route: 030
  7. PAXIL [Concomitant]
     Active Substance: PAROXETINE HYDROCHLORIDE
     Indication: INSOMNIA
     Route: 048
  8. BEPREVE [Concomitant]
     Active Substance: BEPOTASTINE BESILATE
     Dosage: PLACE ONE DROP INTO RIGHT EVERY EYE EVENING
  9. XELODA [Concomitant]
     Active Substance: CAPECITABINE
     Indication: BREAST CANCER FEMALE
     Route: 048
  10. ANASPAZ [Concomitant]
     Active Substance: HYOSCYAMINE SULFATE
     Indication: BLADDER SPASM
     Route: 048
  11. ZOFRAN [Concomitant]
     Active Substance: ONDANSETRON HYDROCHLORIDE
     Dosage: 8.0MG UNKNOWN
     Route: 048
  12. IMODIUM [Concomitant]
     Active Substance: LOPERAMIDE HYDROCHLORIDE
     Dosage: 2 MG, DAILY AS NEEDED
     Route: 048
  13. REGLAN [Concomitant]
     Active Substance: METOCLOPRAMIDE HYDROCHLORIDE
     Dosage: 10MG, FOUR TIMES DAILY
     Route: 048
  14. EMLA [Suspect]
     Active Substance: LIDOCAINE\PRILOCAINE
     Indication: ANAESTHESIA
     Dosage: 30G, ONCE
     Route: 061
  15. TAMOXIFEN [Suspect]
     Active Substance: TAMOXIFEN
     Indication: BREAST CANCER FEMALE
     Route: 048
     Dates: start: 2001, end: 2004
  16. ARIMIDEX [Suspect]
     Active Substance: ANASTROZOLE
     Indication: BREAST CANCER FEMALE
     Route: 048
  17. PERJETA [Suspect]
     Active Substance: PERTUZUMAB
     Indication: BREAST CANCER METASTATIC
     Dosage: 420MG
     Route: 042
  18. VISTARIL [Concomitant]
     Active Substance: HYDROXYZINE PAMOATE
     Indication: NEUROSIS
     Route: 048
  19. HERCEPTIN [Suspect]
     Active Substance: TRASTUZUMAB
     Indication: BREAST CANCER METASTATIC
     Dosage: 6MG/KG, ONCE
     Route: 042
  20. PAXIL [Concomitant]
     Active Substance: PAROXETINE HYDROCHLORIDE
     Indication: DEPRESSION
     Route: 048
  21. MAGIC MOUTHWASH [Concomitant]
     Active Substance: DIPHENHYDRAMINE HYDROCHLORIDE\LIDOCAINE HYDROCHLORIDE\NYSTATIN
     Indication: MUCOSAL INFLAMMATION

REACTIONS (29)
  - Tumour marker increased [Unknown]
  - Pancreatic cyst [Unknown]
  - Hypotension [Unknown]
  - Onychoclasis [Unknown]
  - Lymphadenopathy [Unknown]
  - Nail infection [Recovering/Resolving]
  - Gallbladder enlargement [Unknown]
  - Stomatitis [Unknown]
  - Fatigue [Recovering/Resolving]
  - Metastases to bone [Not Recovered/Not Resolved]
  - Depression [Recovered/Resolved]
  - Abdominal rigidity [Unknown]
  - Weight decreased [Recovering/Resolving]
  - Vulvovaginal dryness [Recovering/Resolving]
  - Pruritus [Unknown]
  - Pulmonary mass [Unknown]
  - Vulvovaginal discomfort [Recovering/Resolving]
  - Diarrhoea [Unknown]
  - Malignant neoplasm progression [Unknown]
  - Hypoglycaemia [Unknown]
  - Abdominal distension [Recovering/Resolving]
  - Rash [Unknown]
  - Metastases to small intestine [Unknown]
  - Presyncope [Unknown]
  - Liver function test increased [Unknown]
  - Ejection fraction decreased [Unknown]
  - Biliary dilatation [Unknown]
  - Small intestine adenocarcinoma [Unknown]
  - Anxiety [Recovering/Resolving]

NARRATIVE: CASE EVENT DATE: 2013
